FAERS Safety Report 9860109 (Version 2)
Quarter: 2014Q1

REPORT INFORMATION
  Report Type: Report from Study
  Country: NL (occurrence: NL)
  Receive Date: 20140201
  Receipt Date: 20140209
  Transmission Date: 20141002
  Serious: Yes (Hospitalization)
  Sender: FDA-Public Use
  Company Number: NL-ROCHE-1339780

PATIENT
  Age: 34 Year
  Sex: Female

DRUGS (8)
  1. BEVACIZUMAB [Suspect]
     Indication: BREAST CANCER METASTATIC
     Dosage: 1500MG
     Route: 042
     Dates: start: 20121112, end: 20131202
  2. PACLITAXEL [Suspect]
     Indication: BREAST CANCER METASTATIC
     Dosage: MOST RECENT DOSE RECEIVED:08/APR/2013.
     Route: 042
     Dates: start: 20121112
  3. MOVICOLON [Concomitant]
     Route: 065
     Dates: start: 20131129
  4. PARACETAMOL [Concomitant]
     Route: 065
     Dates: start: 20120101
  5. OXYCONTIN [Concomitant]
     Route: 065
     Dates: start: 20131129, end: 20131204
  6. OXYNORM [Concomitant]
     Dosage: PRN
     Route: 065
     Dates: start: 20131129
  7. OMEPRAZOLE [Concomitant]
     Route: 065
  8. FRAXODI [Concomitant]
     Route: 065
     Dates: start: 20130324

REACTIONS (3)
  - VIth nerve paralysis [Recovered/Resolved with Sequelae]
  - Disease progression [Unknown]
  - Posterior reversible encephalopathy syndrome [Unknown]
